FAERS Safety Report 6518846-2 (Version None)
Quarter: 2009Q4

REPORT INFORMATION
  Report Type: 
  Country: None (occurrence: None)
  Receive Date: 20091228
  Receipt Date: 20091124
  Transmission Date: 20100525
  Serious: No
  Sender: FDA-Public Use
  Company Number: US-BAYER-200942057NA

PATIENT
  Age: 23 Year
  Sex: Female
  Weight: 70 kg

DRUGS (4)
  1. ULTRAVIST (PHARMACY BULK) [Suspect]
     Indication: COMPUTERISED TOMOGRAM ABDOMEN
     Dosage: TOTAL DAILY DOSE: 80 ML  UNIT DOSE: 500 ML
     Route: 042
     Dates: start: 20091124, end: 20091124
  2. ULTRAVIST (PHARMACY BULK) [Suspect]
     Dosage: ULTRAVIST GIVEN AS ORAL CONTRAST
     Route: 048
     Dates: start: 20091124, end: 20091124
  3. YAZ [Concomitant]
  4. LEXAPRO [Concomitant]

REACTIONS (2)
  - PRURITUS [None]
  - URTICARIA [None]
